FAERS Safety Report 5662284-1 (Version None)
Quarter: 2008Q1

REPORT INFORMATION
  Report Type: 
  Country: None (occurrence: None)
  Receive Date: 20080312
  Receipt Date: 20080305
  Transmission Date: 20080703
  Serious: Yes (Hospitalization)
  Sender: FDA-Public Use
  Company Number: SE-MERCK-0803SWE00006

PATIENT
  Age: 79 Year
  Sex: Female

DRUGS (2)
  1. COSOPT [Suspect]
     Indication: INTRAOCULAR PRESSURE INCREASED
     Route: 065
     Dates: end: 20080229
  2. COSOPT [Suspect]
     Route: 065
     Dates: start: 20080303

REACTIONS (4)
  - CARDIAC DISORDER [None]
  - EYE PRURITUS [None]
  - GAIT DISTURBANCE [None]
  - SKIN EXFOLIATION [None]
